FAERS Safety Report 5039080-1 (Version None)
Quarter: 2006Q2

REPORT INFORMATION
  Report Type: 
  Country: None (occurrence: None)
  Receive Date: 20060629
  Receipt Date: 20060623
  Transmission Date: 20061013
  Serious: Yes (Other)
  Sender: FDA-Public Use
  Company Number: US-MERCK-0606USA04526

PATIENT
  Age: 6 Year
  Sex: Male

DRUGS (3)
  1. SINGULAIR [Suspect]
     Indication: ASTHMA
     Route: 048
     Dates: start: 20050101
  2. ZYRTEC [Concomitant]
     Route: 065
     Dates: end: 20060623
  3. FLOVENT [Concomitant]
     Route: 065

REACTIONS (1)
  - DIPLOPIA [None]
